FAERS Safety Report 6760174-4 (Version None)
Quarter: 2010Q2

REPORT INFORMATION
  Report Type: 
  Country: None (occurrence: None)
  Receive Date: 20100608
  Receipt Date: 20100525
  Transmission Date: 20101027
  Serious: Yes (Death, Hospitalization)
  Sender: FDA-Public Use
  Company Number: NL-MEDIMMUNE-MEDI-0011149

PATIENT
  Sex: Male
  Weight: 1.97 kg

DRUGS (8)
  1. SYNAGIS [Suspect]
     Route: 030
     Dates: start: 20091114, end: 20091210
  2. SYNAGIS [Suspect]
     Route: 030
     Dates: start: 20100101, end: 20100101
  3. CEHAZIDIM [Concomitant]
  4. ALBUMIN (HUMAN) [Concomitant]
  5. FUROSEMIDE [Concomitant]
  6. NABIC SUPPLETION [Concomitant]
  7. ORAL REHYDRATION SALT [Concomitant]
  8. PARENTERAL FEEDING [Concomitant]

REACTIONS (6)
  - GASTRIC HAEMORRHAGE [None]
  - IMMUNODEFICIENCY [None]
  - INFECTION [None]
  - PNEUMOCYSTIS JIROVECI PNEUMONIA [None]
  - PYREXIA [None]
  - SHOCK [None]
